FAERS Safety Report 4489608-5 (Version None)
Quarter: 2004Q4

REPORT INFORMATION
  Report Type: 
  Country: None (occurrence: None)
  Receive Date: 20041101
  Receipt Date: 20040602
  Transmission Date: 20050328
  Serious: Yes (Death, Hospitalization)
  Sender: FDA-Public Use
  Company Number: PHHO2004JP07978

PATIENT
  Age: 71 Year
  Sex: Male
  Weight: 53 kg

DRUGS (1)
  1. DIOVAN [Suspect]
     Dosage: 80 MG, QD
     Route: 048
     Dates: start: 20030109, end: 20031121

REACTIONS (3)
  - CEREBRAL INFARCTION [None]
  - DIAPHRAGMATIC PARALYSIS [None]
  - HEMIPLEGIA [None]
